FAERS Safety Report 4719904-5 (Version None)
Quarter: 2005Q3

REPORT INFORMATION
  Report Type: 
  Country: None (occurrence: None)
  Receive Date: 20050721
  Receipt Date: 20050117
  Transmission Date: 20060218
  Serious: No
  Sender: FDA-Public Use
  Company Number: US-GLAXOSMITHKLINE-A0540942A

PATIENT
  Age: 42 Year
  Sex: Female

DRUGS (4)
  1. AVANDIA [Suspect]
     Indication: DRUG USE FOR UNKNOWN INDICATION
     Dosage: 4MG PER DAY
     Route: 048
  2. CLIMARA [Concomitant]
  3. AYGESTIN [Concomitant]
  4. ZYRTEC [Concomitant]

REACTIONS (3)
  - ADNEXA UTERI PAIN [None]
  - GALACTORRHOEA [None]
  - OVULATION INDUCTION [None]
